FAERS Safety Report 8509031-3 (Version None)
Quarter: 2012Q3

REPORT INFORMATION
  Report Type: 
  Country: None (occurrence: None)
  Receive Date: 20120702
  Receipt Date: 20120619
  Transmission Date: 20120928
  Serious: Yes (Other)
  Sender: FDA-Public Use
  Company Number: CN-JNJFOC-20120614014

PATIENT

DRUGS (9)
  1. CYTARABINE [Suspect]
     Indication: MYELOID LEUKAEMIA
     Dosage: 10 MG/M2, IN 1 CYCLICAL
  2. CYTARABINE [Suspect]
     Indication: MYELODYSPLASTIC SYNDROME
     Dosage: 10 MG/M2, IN 1 CYCLICAL
  3. DECITABINE [Suspect]
     Indication: MYELOID LEUKAEMIA
     Dosage: 15 MG/M2, IN 1 CYCLICAL, INTRAVENOUS
     Route: 042
  4. HYDROXYUREA [Concomitant]
  5. ACLARUBICIN (ACLARUBICIN) UNSPECIFIED [Suspect]
     Indication: MYELOID LEUKAEMIA
     Dosage: 10 MG, IN 1 CYCLICAL
  6. ACLARUBICIN (ACLARUBICIN) UNSPECIFIED [Suspect]
     Indication: MYELODYSPLASTIC SYNDROME
     Dosage: 10 MG, IN 1 CYCLICAL
  7. GRANULOCYTE COLONY STIMULATING FACTOR (GRANULOCYTE COLONY STIMULATING [Suspect]
     Indication: MYELODYSPLASTIC SYNDROME
  8. GRANULOCYTE COLONY STIMULATING FACTOR (GRANULOCYTE COLONY STIMULATING [Suspect]
     Indication: MYELOID LEUKAEMIA
  9. HOMOHARRINGTONINE (HOMOHARRINGTONINE) [Concomitant]

REACTIONS (6)
  - BONE MARROW FAILURE [None]
  - THROMBOCYTOSIS [None]
  - NEUTROPENIA [None]
  - FEBRILE NEUTROPENIA [None]
  - NO THERAPEUTIC RESPONSE [None]
  - THROMBOCYTOPENIA [None]
